FAERS Safety Report 6139229-3 (Version None)
Quarter: 2009Q2

REPORT INFORMATION
  Report Type: 
  Country: None (occurrence: None)
  Receive Date: 20090401
  Receipt Date: 20090320
  Transmission Date: 20091009
  Serious: Yes (Hospitalization)
  Sender: FDA-Public Use
  Company Number: PL-WYE-H08663009

PATIENT
  Sex: Female

DRUGS (4)
  1. EFFEXOR XR [Suspect]
     Indication: DEPRESSION
     Route: 048
     Dates: start: 20080814, end: 20080827
  2. EFFEXOR XR [Suspect]
     Route: 048
     Dates: start: 20080828, end: 20090220
  3. EFFEXOR XR [Suspect]
     Route: 048
     Dates: start: 20090221, end: 20090307
  4. IBUPROFEN [Concomitant]
     Dosage: UNKNOWN
     Dates: start: 20080816, end: 20080816

REACTIONS (1)
  - SCIATICA [None]
